FAERS Safety Report 16546960 (Version 1)
Quarter: 2019Q3

REPORT INFORMATION
  Report Type: Spontaneous
  Country: DE (occurrence: DE)
  Receive Date: 20190709
  Receipt Date: 20190709
  Transmission Date: 20191004
  Serious: Yes (Other)
  Sender: FDA-Public Use
  Company Number: DE-GUERBET-DE-20190077

PATIENT
  Age: 56 Year
  Sex: Male

DRUGS (2)
  1. HISTOACRYL [Suspect]
     Active Substance: ENBUCRILATE
     Indication: THERAPEUTIC EMBOLISATION
     Dosage: 11 MIXTURE OF HISTOACRYL AND LIPIODOL ULTRA-FLUID WAS INJECTED, TOTAL AMOUNT OF 2 ML INJECTED IN 2
     Route: 042
  2. LIPIODOL ULTRA-FLUIDE [Suspect]
     Active Substance: ETHIODIZED OIL
     Indication: THERAPEUTIC EMBOLISATION
     Dosage: 11 MIXTURE OF HISTOACRYL AND LIPIODOL ULTRA-FLUID WAS INJECTED, TOTAL AMOUNT OF 2 ML INJECTED IN 2
     Route: 042

REACTIONS (3)
  - Portal vein embolism [Recovered/Resolved]
  - Hepatic cirrhosis [Unknown]
  - Product use in unapproved indication [Unknown]
